FAERS Safety Report 23548854 (Version 1)
Quarter: 2024Q1

REPORT INFORMATION
  Report Type: Other
  Country: GB (occurrence: GB)
  Receive Date: 20240221
  Receipt Date: 20240221
  Transmission Date: 20240409
  Serious: Yes (Other)
  Sender: FDA-Public Use
  Company Number: GB-drreddys-GER/UKI/12/0025687

PATIENT
  Age: 15 Year
  Sex: Female

DRUGS (10)
  1. CETIRIZINE [Suspect]
     Active Substance: CETIRIZINE HYDROCHLORIDE
     Indication: Seasonal allergy
     Dosage: OCCASIONAL CETIRIZINE
     Route: 048
  2. CETIRIZINE [Suspect]
     Active Substance: CETIRIZINE HYDROCHLORIDE
  3. LAMICTAL [Interacting]
     Active Substance: LAMOTRIGINE
     Indication: Bipolar disorder
     Route: 048
  4. LAMICTAL [Interacting]
     Active Substance: LAMOTRIGINE
     Route: 048
  5. LAMICTAL [Interacting]
     Active Substance: LAMOTRIGINE
     Route: 048
  6. ABILIFY [Interacting]
     Active Substance: ARIPIPRAZOLE
     Indication: Bipolar disorder
     Route: 048
  7. NEXPLANON [Interacting]
     Active Substance: ETONOGESTREL
     Indication: Contraception
     Route: 062
  8. LAMOTRIGINE [Interacting]
     Active Substance: LAMOTRIGINE
     Indication: Bipolar disorder
     Route: 048
  9. LAMOTRIGINE [Interacting]
     Active Substance: LAMOTRIGINE
     Route: 048
  10. ETONOGESTREL [Interacting]
     Active Substance: ETONOGESTREL
     Indication: Contraception

REACTIONS (11)
  - Abortion spontaneous [Unknown]
  - Intermenstrual bleeding [Unknown]
  - Drug interaction [Unknown]
  - Intermenstrual bleeding [Unknown]
  - Pregnancy on contraceptive [Recovered/Resolved]
  - Pregnancy with contraceptive device [Recovered/Resolved]
  - Pregnancy with implant contraceptive [Recovered/Resolved]
  - Unintended pregnancy [Recovered/Resolved]
  - Pregnancy [Recovered/Resolved]
  - Exposure during pregnancy [Recovered/Resolved]
  - Maternal exposure during pregnancy [Recovered/Resolved]
